FAERS Safety Report 8823764 (Version 2)
Quarter: 2012Q4

REPORT INFORMATION
  Report Type: 
  Country: US (occurrence: US)
  Receive Date: 20121003
  Receipt Date: 20121128
  Transmission Date: 20130627
  Serious: No
  Sender: FDA-Public Use
  Company Number: US-009507513-1210USA000323

PATIENT
  Age: 16 None
  Sex: Female

DRUGS (3)
  1. NEXPLANON [Suspect]
     Indication: CONTRACEPTION
     Dosage: UNK
     Dates: start: 20120925, end: 20120925
  2. NEXPLANON [Suspect]
     Dosage: UNK
     Dates: start: 20120925, end: 20120925
  3. NEXPLANON [Suspect]
     Dosage: UNK
     Dates: start: 20121010

REACTIONS (4)
  - Complication of device insertion [Unknown]
  - Product quality issue [Unknown]
  - Medical device complication [Unknown]
  - Device difficult to use [Unknown]
